FAERS Safety Report 7630717-7 (Version None)
Quarter: 2011Q3

REPORT INFORMATION
  Report Type: 
  Country: None (occurrence: None)
  Receive Date: 20110722
  Receipt Date: 20110715
  Transmission Date: 20111222
  Serious: Yes (Hospitalization)
  Sender: FDA-Public Use
  Company Number: JP-MERCK-1107USA00385

PATIENT
  Age: 48 Year
  Sex: Male
  Weight: 66 kg

DRUGS (7)
  1. AMARYL [Concomitant]
     Indication: HYPERGLYCAEMIA
     Route: 048
     Dates: start: 20110423, end: 20110511
  2. JANUVIA [Suspect]
     Indication: HYPERGLYCAEMIA
     Route: 048
     Dates: start: 20110323, end: 20110511
  3. EURODIN [Concomitant]
     Indication: INSOMNIA
     Route: 048
     Dates: start: 20101022, end: 20110511
  4. GLYCORAN [Concomitant]
     Indication: HYPERGLYCAEMIA
     Route: 048
     Dates: start: 20070706, end: 20110511
  5. ACTOS [Concomitant]
     Indication: HYPERGLYCAEMIA
     Route: 048
     Dates: start: 20090116, end: 20110511
  6. LIVALO [Concomitant]
     Indication: DYSLIPIDAEMIA
     Route: 048
     Dates: start: 20071124, end: 20110511
  7. ALLOPURINOL [Concomitant]
     Indication: BLOOD URIC ACID INCREASED
     Route: 048
     Dates: start: 20100506, end: 20110511

REACTIONS (1)
  - ILEUS [None]
